FAERS Safety Report 12654566 (Version 36)
Quarter: 2020Q2

REPORT INFORMATION
  Report Type: Spontaneous
  Country: US (occurrence: US)
  Receive Date: 20160816
  Receipt Date: 20200529
  Transmission Date: 20200713
  Serious: Yes (Life-Threatening, Hospitalization, Congenital Anomaly, Other)
  Sender: FDA-Public Use
  Company Number: PHHY2015US133640

PATIENT
  Sex: Female

DRUGS (2)
  1. ZOFRAN [Suspect]
     Active Substance: ONDANSETRON HYDROCHLORIDE
     Indication: FOETAL EXPOSURE DURING PREGNANCY
     Dosage: MOTHERS DOSE: 4 TO 8 MG, EVERY 06 HRS
     Route: 064
  2. ONDANSETRON HYDROCHLORIDE. [Suspect]
     Active Substance: ONDANSETRON HYDROCHLORIDE
     Indication: FOETAL EXPOSURE DURING PREGNANCY
     Dosage: MOTHER DOSE: 4 MG, QD
     Route: 064

REACTIONS (102)
  - Ventricular tachycardia [Unknown]
  - Right ventricular hypertrophy [Unknown]
  - Arrhythmia [Unknown]
  - Supraventricular tachycardia [Unknown]
  - Pulmonary artery dilatation [Unknown]
  - Night sweats [Unknown]
  - Acne [Unknown]
  - Abscess [Unknown]
  - Seborrhoeic dermatitis [Unknown]
  - Weight increased [Unknown]
  - Dilatation atrial [Unknown]
  - Tachycardia [Unknown]
  - Right atrial dilatation [Unknown]
  - Insomnia [Unknown]
  - Muscle twitching [Unknown]
  - Injury [Unknown]
  - Heart disease congenital [Unknown]
  - Pulmonary artery stenosis congenital [Unknown]
  - Enteritis infectious [Unknown]
  - Tricuspid valve disease [Unknown]
  - Colitis [Unknown]
  - Erythema [Unknown]
  - Tenderness [Unknown]
  - Memory impairment [Unknown]
  - Upper respiratory tract infection [Unknown]
  - Hypersomnia [Unknown]
  - Atrial septal defect [Unknown]
  - Left-to-right cardiac shunt [Unknown]
  - Haematochezia [Unknown]
  - Ventricular tachyarrhythmia [Unknown]
  - Cough [Unknown]
  - Diarrhoea [Unknown]
  - Pyrexia [Unknown]
  - Viral infection [Unknown]
  - Arthralgia [Unknown]
  - Folliculitis [Unknown]
  - Xerosis [Unknown]
  - Conduction disorder [Unknown]
  - Nausea [Unknown]
  - Stress [Unknown]
  - Visual impairment [Unknown]
  - Emotional distress [Unknown]
  - Patent ductus arteriosus [Unknown]
  - Congenital tricuspid valve atresia [Unknown]
  - Ventricular septal defect [Unknown]
  - Fallot^s tetralogy [Unknown]
  - Shone complex [Unknown]
  - Pulmonary valve incompetence [Unknown]
  - Hypokalaemia [Unknown]
  - Periorbital cellulitis [Unknown]
  - Atrial tachycardia [Unknown]
  - Vulvovaginal discomfort [Unknown]
  - Eating disorder [Unknown]
  - Fatigue [Unknown]
  - Chest pain [Unknown]
  - Dermatitis diaper [Unknown]
  - Eczema [Unknown]
  - Dysuria [Unknown]
  - Generalised anxiety disorder [Unknown]
  - Aortic dilatation [Unknown]
  - Congenital anomaly [Unknown]
  - Cardiac murmur [Unknown]
  - Right ventricle outflow tract obstruction [Unknown]
  - Ventricular extrasystoles [Unknown]
  - Attention deficit hyperactivity disorder [Unknown]
  - Hypertrophic scar [Unknown]
  - Anger [Unknown]
  - Right ventricular dilatation [Unknown]
  - Snoring [Unknown]
  - Congenital heart valve disorder [Unknown]
  - Gastrooesophageal reflux disease [Unknown]
  - Neonatal tachypnoea [Unknown]
  - Nervousness [Unknown]
  - Anxiety [Unknown]
  - Pityriasis rosea [Unknown]
  - Depression [Unknown]
  - Bacterial infection [Unknown]
  - Palpitations [Unknown]
  - Depressed mood [Unknown]
  - Ecchymosis [Unknown]
  - Fluid retention [Unknown]
  - Pulmonary artery atresia [Unknown]
  - Laevocardia [Unknown]
  - Tricuspid valve incompetence [Unknown]
  - Nasopharyngitis [Unknown]
  - Skin infection [Unknown]
  - Paronychia [Unknown]
  - Right atrial enlargement [Unknown]
  - Skin lesion [Unknown]
  - Congenital pulmonary valve atresia [Unknown]
  - Ebstein^s anomaly [Unknown]
  - Foetal exposure during pregnancy [Unknown]
  - Pulmonary oedema [Unknown]
  - Major depression [Unknown]
  - Syncope [Unknown]
  - Right ventricular enlargement [Unknown]
  - Panic attack [Unknown]
  - Dyspnoea [Unknown]
  - Pain [Unknown]
  - Cardiomegaly [Unknown]
  - Apathy [Unknown]
  - Dizziness [Unknown]
